FAERS Safety Report 5252201-0 (Version None)
Quarter: 2007Q1

REPORT INFORMATION
  Report Type: 
  Country: None (occurrence: None)
  Receive Date: 20070227
  Receipt Date: 20070227
  Transmission Date: 20070707
  Serious: No
  Sender: FDA-Public Use
  Company Number: None

PATIENT
  Age: 52 Year
  Sex: Female
  Weight: 102.0593 kg

DRUGS (2)
  1. DOXYCYCLINE [Suspect]
     Indication: PTERYGIUM
     Dosage: 1 CAPSULE DAILY PO
     Route: 048
     Dates: start: 20070119, end: 20070222
  2. DOXYCYCLINE [Suspect]
     Indication: ROSACEA
     Dosage: 1 CAPSULE DAILY PO
     Route: 048
     Dates: start: 20070119, end: 20070222

REACTIONS (3)
  - INTERCEPTED DRUG DISPENSING ERROR [None]
  - MEDICATION ERROR [None]
  - PHARMACEUTICAL PRODUCT COMPLAINT [None]
